FAERS Safety Report 5776975-5 (Version None)
Quarter: 2008Q2

REPORT INFORMATION
  Report Type: 
  Country: None (occurrence: None)
  Receive Date: 20080618
  Receipt Date: 20080611
  Transmission Date: 20081010
  Serious: Yes (Hospitalization, Other)
  Sender: FDA-Public Use
  Company Number: FR-JNJFOC-20080602798

PATIENT
  Age: 3 Year
  Sex: Female
  Weight: 13 kg

DRUGS (2)
  1. EPITOMAX [Suspect]
     Indication: EPILEPSY
  2. DEPAKENE [Concomitant]
     Indication: EPILEPSY

REACTIONS (3)
  - EPILEPSY [None]
  - GAIT DISTURBANCE [None]
  - SPEECH DISORDER [None]
